FAERS Safety Report 9092204 (Version 1)
Quarter: 2013Q1

REPORT INFORMATION
  Report Type: Spontaneous
  Country: JP (occurrence: JP)
  Receive Date: 20130131
  Receipt Date: 20130131
  Transmission Date: 20140127
  Serious: Yes (Hospitalization, Other)
  Sender: FDA-Public Use
  Company Number: PHHY2013JP007824

PATIENT
  Sex: Female

DRUGS (3)
  1. COMTAN [Suspect]
     Route: 048
  2. BENSERAZIDE HYDROCHLORIDE [Concomitant]
     Dosage: EVERY 3 HOURS NOT AFTER MEALS
  3. MAGLAX [Concomitant]

REACTIONS (4)
  - Cerebral infarction [Unknown]
  - Oral mucosal discolouration [Unknown]
  - Wrong technique in drug usage process [Unknown]
  - Constipation [Unknown]
